FAERS Safety Report 5603987-4 (Version None)
Quarter: 2008Q1

REPORT INFORMATION
  Report Type: 
  Country: None (occurrence: None)
  Receive Date: 20080123
  Receipt Date: 20080114
  Transmission Date: 20080703
  Serious: Yes (Death)
  Sender: FDA-Public Use
  Company Number: B0503069A

PATIENT
  Age: 20 Year
  Sex: Female

DRUGS (3)
  1. BUPROPION HCL [Suspect]
     Dosage: ORAL
     Route: 048
  2. AMPHETAMINES [Suspect]
     Dosage: ORAL
     Route: 048
  3. PHENCYCLIDINE HCL (FORMULATION UNKNOWN) (PHENYCYCLIDINE HCL) [Suspect]
     Dosage: ORAL
     Route: 048

REACTIONS (2)
  - INTENTIONAL DRUG MISUSE [None]
  - INTENTIONAL OVERDOSE [None]
